FAERS Safety Report 6394713-2 (Version None)
Quarter: 2009Q4

REPORT INFORMATION
  Report Type: 
  Country: None (occurrence: None)
  Receive Date: 20091009
  Receipt Date: 20090924
  Transmission Date: 20100525
  Serious: Yes (Other)
  Sender: FDA-Public Use
  Company Number: BR-PFIZER INC-2009195539

PATIENT

DRUGS (1)
  1. FELDENE [Suspect]
     Dosage: 40 MG, 1X/DAY
     Dates: start: 20080606, end: 20080607

REACTIONS (3)
  - INJECTION SITE ATROPHY [None]
  - INJECTION SITE DISCOLOURATION [None]
  - INJECTION SITE PAIN [None]
